FAERS Safety Report 4661152-1 (Version None)
Quarter: 2005Q2

REPORT INFORMATION
  Report Type: 
  Country: None (occurrence: None)
  Receive Date: 20050427
  Receipt Date: 20050216
  Transmission Date: 20051028
  Serious: Yes (Other)
  Sender: FDA-Public Use
  Company Number: 212361

PATIENT
  Age: 55 Year
  Sex: Female

DRUGS (8)
  1. XOLAIR [Suspect]
     Indication: ASTHMA
     Dosage: 150 MG, 1/MONTH, UNK
     Dates: start: 20040407
  2. ADVAIR (FLUTICASONE PROPIONATE, SALMETEROL XINAFOATE) [Concomitant]
  3. PROVENTIL HFA (ALBUTEROL SULFATE, ALBUTEROL) [Concomitant]
  4. SINGULAIR [Concomitant]
  5. CELEBREX [Concomitant]
  6. PREVACID [Concomitant]
  7. ALLEGRA [Concomitant]
  8. RHINOCORT AQUA (BUDESONIDE) [Concomitant]

REACTIONS (2)
  - ANGIOCENTRIC LYMPHOMA [None]
  - FIBROUS HISTIOCYTOMA [None]
